FAERS Safety Report 9710242 (Version 1)
Quarter: 2013Q4

REPORT INFORMATION
  Report Type: Spontaneous
  Country: TH (occurrence: TH)
  Receive Date: 20131126
  Receipt Date: 20131126
  Transmission Date: 20140711
  Serious: Yes (Other)
  Sender: FDA-Public Use
  Company Number: TH-JNJFOC-20131111474

PATIENT
  Sex: 0

DRUGS (3)
  1. DOXORUBICIN HYDROCHLORIDE [Suspect]
     Indication: NEOPLASM
     Route: 042
  2. VINCRISTINE [Suspect]
     Indication: NEOPLASM
     Route: 065
  3. CYCLOPHOSPHAMIDE [Suspect]
     Indication: NEOPLASM
     Route: 065

REACTIONS (3)
  - Neoplasm [Unknown]
  - Drug ineffective [Unknown]
  - Off label use [Unknown]
